FAERS Safety Report 17226126 (Version 2)
Quarter: 2020Q1

REPORT INFORMATION
  Report Type: Spontaneous
  Country: CH (occurrence: CH)
  Receive Date: 20200102
  Receipt Date: 20200114
  Transmission Date: 20200409
  Serious: Yes (Hospitalization, Other)
  Sender: FDA-Public Use
  Company Number: CH-NAPPMUNDI-GBR-2019-0074079

PATIENT
  Age: 81 Year
  Sex: Male

DRUGS (18)
  1. PREGABALIN. [Interacting]
     Active Substance: PREGABALIN
     Dosage: 25 MG, NOCTE (0-0-0-2 1H BEFORE BEDTIME)
     Route: 048
     Dates: end: 20191021
  2. TARGIN [Interacting]
     Active Substance: NALOXONE HYDROCHLORIDE\OXYCODONE HYDROCHLORIDE
     Indication: RESTLESS LEGS SYNDROME
     Dosage: UNK UNK, DAILY (STRENGTH 10/5 MG) (0-0-0-1 )
     Route: 048
     Dates: start: 20191021, end: 20191021
  3. NEURONTIN [Interacting]
     Active Substance: GABAPENTIN
     Indication: RESTLESS LEGS SYNDROME
     Dosage: 100 MG, BID (1-0-1-0, ZUSATZLICH IN RESERVE) (ADDITIONALLY AS NEEDED)
     Route: 048
     Dates: start: 20191025
  4. PREGABALIN. [Interacting]
     Active Substance: PREGABALIN
     Indication: RESTLESS LEGS SYNDROME
     Dosage: 25 MG, NOCTE (0-0-0-2 1H BEFORE BEDTIME)
     Route: 048
     Dates: start: 20191025
  5. EUTHYROX [Concomitant]
     Active Substance: LEVOTHYROXINE SODIUM
     Dosage: UNK (STRENGTH 25MCG 1-0-0-0)
  6. LYMAN                              /00512301/ [Concomitant]
     Dosage: UNK, PRN
     Route: 061
  7. EUTHYROX [Concomitant]
     Active Substance: LEVOTHYROXINE SODIUM
     Dosage: UNK (STRENGTH 50MCG 1-0-0-0)
     Route: 048
  8. MOVICOL [Concomitant]
     Active Substance: POLYETHYLENE GLYCOL 3350\POTASSIUM CHLORIDE\SODIUM BICARBONATE\SODIUM CHLORIDE
     Dosage: UNK (BAG, 0-1-0-0)
     Route: 048
  9. INSULIN DEGLUDEC [Concomitant]
     Active Substance: INSULIN DEGLUDEC
     Dosage: UNK, (EVENING 4 UNITS OR ADAPTED TO BLOOD GLUCOSE)
     Route: 058
  10. NEURONTIN [Interacting]
     Active Substance: GABAPENTIN
     Dosage: 300 MG, DAILY (0-0-1-0 )
     Route: 048
     Dates: end: 20191024
  11. TOREM                              /01036501/ [Concomitant]
     Active Substance: TORSEMIDE
     Dosage: UNK (2-0-0)
     Route: 048
     Dates: end: 201910
  12. MARCOUMAR [Concomitant]
     Active Substance: PHENPROCOUMON
     Dosage: UNK (STRENGTH 3MG)
     Route: 048
  13. CORDARONE [Concomitant]
     Active Substance: AMIODARONE HYDROCHLORIDE
     Dosage: UNK UNK, DAILY (UNK (1-0-0-0 ON MON, TUE, WED, THUR, FRI))
     Route: 048
  14. DAFALGAN [Concomitant]
     Active Substance: ACETAMINOPHEN
     Dosage: UNK (STRENGTH 500 MG, 1-1-1-1)
     Route: 048
  15. OXYNORM [Suspect]
     Active Substance: OXYCODONE HYDROCHLORIDE
     Indication: RESTLESS LEGS SYNDROME
     Dosage: 5 MG, PRN (MAXIMUM OF 5 CAPSULES IN 24 HOURS )
     Route: 048
     Dates: start: 20191021, end: 20191021
  16. TOREM                              /01036501/ [Concomitant]
     Active Substance: TORSEMIDE
     Dosage: UNK (5-0-0-0)
     Route: 048
     Dates: start: 201910
  17. NEUPRO [Concomitant]
     Active Substance: ROTIGOTINE
     Dosage: 2 MG, Q24H (1 PATCH/24H)
     Route: 062
  18. NOVORAPID [Concomitant]
     Active Substance: INSULIN ASPART
     Dosage: UNK, (AS NECESSARY, ACCORDING TO BLOOD GLUCOSE)
     Route: 058

REACTIONS (7)
  - Drug interaction [Unknown]
  - Disturbance in attention [Recovered/Resolved]
  - Hypotension [Unknown]
  - Unresponsive to stimuli [Recovered/Resolved]
  - Somnolence [Recovered/Resolved]
  - Disorientation [Unknown]
  - Renal failure [Unknown]

NARRATIVE: CASE EVENT DATE: 20191021
